FAERS Safety Report 5298891-8 (Version None)
Quarter: 2007Q2

REPORT INFORMATION
  Report Type: 
  Country: None (occurrence: None)
  Receive Date: 20070410
  Receipt Date: 20070330
  Transmission Date: 20071010
  Serious: Yes (Hospitalization)
  Sender: FDA-Public Use
  Company Number: B0463257A

PATIENT
  Age: 11 Year
  Sex: Female
  Weight: 52.209 kg

DRUGS (2)
  1. MENACTRA INJECTION (MENACTRA) [Suspect]
     Dosage: SINGLE DOSE / INTRAMUSCULAR
     Route: 030
     Dates: start: 20070226, end: 20070226
  2. CEFTIN [Suspect]
     Indication: URINARY TRACT INFECTION
     Dosage: 250 MG / TWICE PER DAY / ORAL
     Route: 048
     Dates: start: 20070305, end: 20070315

REACTIONS (5)
  - BACK PAIN [None]
  - DRUG HYPERSENSITIVITY [None]
  - ESCHERICHIA URINARY TRACT INFECTION [None]
  - NEUTROPENIA [None]
  - VIRAL INFECTION [None]
